FAERS Safety Report 7681386-1 (Version None)
Quarter: 2011Q3

REPORT INFORMATION
  Report Type: 
  Country: None (occurrence: None)
  Receive Date: 20110809
  Receipt Date: 20110725
  Transmission Date: 20111222
  Serious: Yes (Hospitalization)
  Sender: FDA-Public Use
  Company Number: 2011SP034998

PATIENT
  Age: 26 Year
  Sex: Female

DRUGS (8)
  1. CERAZETTE (DESOGESTREL /00754001) [Suspect]
     Indication: PRODUCT USED FOR UNKNOWN INDICATION
     Dates: start: 20100522
  2. FERROUS SULFATE TAB [Concomitant]
  3. NALADOR (SULPROSTONE) [Suspect]
     Indication: HAEMORRHAGE
     Dosage: IV
     Route: 042
     Dates: start: 20100519, end: 20100519
  4. CLOTTAGEN (FACTOR I (FIBRINOGEN) ) [Suspect]
     Indication: HAEMORRHAGE
     Dosage: 5 DF; IV
     Route: 042
     Dates: start: 20100519, end: 20100519
  5. NOVOSEVEN [Suspect]
     Indication: HAEMORRHAGE
     Dosage: 7 MG;QD;IV
     Route: 042
     Dates: start: 20100520, end: 20100520
  6. NOVOSEVEN [Suspect]
  7. RESTORVOL (ELOHES / 01279201/) [Suspect]
     Indication: PRODUCT USED FOR UNKNOWN INDICATION
     Dosage: 2 L;QD;IV
     Route: 042
     Dates: start: 20100520, end: 20100520
  8. LOVENOX [Concomitant]

REACTIONS (8)
  - RETROPERITONEAL EFFUSION [None]
  - OLIGOMENORRHOEA [None]
  - DISSEMINATED INTRAVASCULAR COAGULATION [None]
  - SHOCK HAEMORRHAGIC [None]
  - HAEMOGLOBIN DECREASED [None]
  - METRORRHAGIA [None]
  - NECROSIS ISCHAEMIC [None]
  - UTERINE DISORDER [None]
